FAERS Safety Report 11795367 (Version 1)
Quarter: 2015Q4

REPORT INFORMATION
  Report Type: Report from Study
  Country: CA (occurrence: CA)
  Receive Date: 20151202
  Receipt Date: 20151202
  Transmission Date: 20160305
  Serious: Yes (Other)
  Sender: FDA-Public Use
  Company Number: CA-ABBVIE-13P-028-1065806-00

PATIENT
  Sex: Female

DRUGS (1)
  1. HUMIRA [Suspect]
     Active Substance: ADALIMUMAB
     Indication: CROHN^S DISEASE
     Route: 058
     Dates: start: 20120611, end: 20130712

REACTIONS (6)
  - Pulmonary mass [Unknown]
  - Dyspnoea [Unknown]
  - Pulmonary granuloma [Unknown]
  - Lung lobectomy [Unknown]
  - Crohn^s disease [Unknown]
  - Haemoptysis [Unknown]
